FAERS Safety Report 8501915-5 (Version None)
Quarter: 2012Q3

REPORT INFORMATION
  Report Type: 
  Country: None (occurrence: None)
  Receive Date: 20120711
  Receipt Date: 20120706
  Transmission Date: 20120928
  Serious: Yes (Other)
  Sender: FDA-Public Use
  Company Number: PHHY2012AU058534

PATIENT
  Age: 24 Year
  Sex: Male

DRUGS (3)
  1. CLOZARIL [Suspect]
     Dosage: 150 MG, (AT NIGHT)
     Route: 048
  2. FLUOXETINE [Concomitant]
     Dosage: 20 MG, (IN MANE)
  3. LITHIUM CARBONATE [Concomitant]
     Dosage: 250 MG, (IN MANE)

REACTIONS (3)
  - TROPONIN INCREASED [None]
  - TACHYCARDIA [None]
  - ELECTROCARDIOGRAM T WAVE ABNORMAL [None]
